FAERS Safety Report 4546133-0 (Version None)
Quarter: 2005Q1

REPORT INFORMATION
  Report Type: 
  Country: None (occurrence: None)
  Receive Date: 20050103
  Receipt Date: 20041229
  Transmission Date: 20050727
  Serious: Yes (Hospitalization, Other)
  Sender: FDA-Public Use
  Company Number: 2004071174

PATIENT
  Age: 57 Year
  Sex: Male

DRUGS (1)
  1. LIPITOR [Suspect]
     Indication: ILL-DEFINED DISORDER
     Dates: start: 20030101, end: 20040901

REACTIONS (8)
  - ASTHENIA [None]
  - FISTULA [None]
  - FORMICATION [None]
  - HAEMANGIOMA [None]
  - HYPOAESTHESIA [None]
  - MYALGIA [None]
  - PARESIS [None]
  - SPINAL DISORDER [None]
